FAERS Safety Report 4658145-7 (Version None)
Quarter: 2005Q2

REPORT INFORMATION
  Report Type: 
  Country: None (occurrence: None)
  Receive Date: 20050509
  Receipt Date: 20050426
  Transmission Date: 20051028
  Serious: Yes (Other)
  Sender: FDA-Public Use
  Company Number: 2005061462

PATIENT
  Sex: Female
  Weight: 72.1219 kg

DRUGS (5)
  1. BEXTRA [Suspect]
     Indication: ACCIDENT AT WORK
     Dosage: 20 MG (20 MG, 1 IN 1 D), ORAL
     Route: 048
  2. BEXTRA [Suspect]
     Indication: PAIN
     Dosage: 20 MG (20 MG, 1 IN 1 D), ORAL
     Route: 048
  3. CELEBREX [Suspect]
     Indication: ACCIDENT AT WORK
     Dosage: 1 IN 1 D, ORAL
     Route: 048
  4. CELEBREX [Suspect]
     Indication: PAIN
     Dosage: 1 IN 1 D, ORAL
     Route: 048
  5. TIZANIDINE HCL [Suspect]
     Indication: PAIN

REACTIONS (17)
  - ACTIVITIES OF DAILY LIVING IMPAIRED [None]
  - CRYING [None]
  - DRUG INEFFECTIVE [None]
  - EXOSTOSIS [None]
  - FATIGUE [None]
  - HERPES SIMPLEX [None]
  - INTERVERTEBRAL DISC DISORDER [None]
  - MEMORY IMPAIRMENT [None]
  - ORAL MUCOSAL BLISTERING [None]
  - PAIN [None]
  - PRURITUS [None]
  - RASH PRURITIC [None]
  - SCAR [None]
  - SKIN DISORDER [None]
  - SKIN REACTION [None]
  - SOMNOLENCE [None]
  - STRESS [None]
